FAERS Safety Report 10297507 (Version 1)
Quarter: 2014Q3

REPORT INFORMATION
  Report Type: Spontaneous
  Country: FR (occurrence: FR)
  Receive Date: 20140711
  Receipt Date: 20140711
  Transmission Date: 20150326
  Serious: Yes (Other)
  Sender: FDA-Public Use
  Company Number: PHHY2014FR085249

PATIENT
  Sex: Female

DRUGS (3)
  1. SOMAVERT [Concomitant]
     Active Substance: PEGVISOMANT
     Indication: ACROMEGALY
  2. SIGNIFOR [Suspect]
     Active Substance: PASIREOTIDE
     Indication: ACROMEGALY
  3. SIGNIFOR [Suspect]
     Active Substance: PASIREOTIDE
     Indication: OFF LABEL USE

REACTIONS (2)
  - Hepatic steatosis [Unknown]
  - Type 2 diabetes mellitus [Unknown]
